FAERS Safety Report 17515932 (Version 2)
Quarter: 2020Q2

REPORT INFORMATION
  Report Type: Spontaneous
  Country: CA (occurrence: CA)
  Receive Date: 20200309
  Receipt Date: 20200422
  Transmission Date: 20200713
  Serious: Yes (Other)
  Sender: FDA-Public Use
  Company Number: CA-PFIZER INC-2020097959

PATIENT
  Age: 56 Year
  Sex: Female

DRUGS (5)
  1. OXYNEO [Concomitant]
     Active Substance: OXYCODONE
     Dosage: UNK, 2X/DAY
  2. REMICADE [Concomitant]
     Active Substance: INFLIXIMAB
     Dosage: UNK
     Dates: start: 201909
  3. CELEBREX [Suspect]
     Active Substance: CELECOXIB
     Indication: ARTHRITIS
     Dosage: 200 MG, 1X/DAY
  4. INFLECTRA [Concomitant]
     Active Substance: INFLIXIMAB-DYYB
     Indication: CROHN^S DISEASE
     Dosage: 300 MG, EVERY 8 WEEKS
     Route: 042
     Dates: start: 20200415
  5. PERCOCET [Concomitant]
     Active Substance: ACETAMINOPHEN\OXYCODONE HYDROCHLORIDE
     Dosage: UNK, 3X/DAY

REACTIONS (5)
  - Feeling abnormal [Unknown]
  - Bacterial infection [Unknown]
  - Abdominal abscess [Unknown]
  - Diarrhoea [Unknown]
  - Psoriatic arthropathy [Unknown]
